FAERS Safety Report 23415613 (Version 1)
Quarter: 2024Q1

REPORT INFORMATION
  Report Type: Report from Study
  Country: US (occurrence: US)
  Receive Date: 20240118
  Receipt Date: 20240118
  Transmission Date: 20240410
  Serious: Yes (Hospitalization, Other)
  Sender: FDA-Public Use
  Company Number: US-ABBVIE-5462544

PATIENT
  Sex: Male
  Weight: 96 kg

DRUGS (12)
  1. IMBRUVICA [Suspect]
     Active Substance: IBRUTINIB
     Indication: Chronic lymphocytic leukaemia
     Route: 048
     Dates: start: 202309, end: 20230921
  2. HYDROXYUREA [Concomitant]
     Active Substance: HYDROXYUREA
     Indication: Chronic myeloid leukaemia
  3. VENCLEXTA [Suspect]
     Active Substance: VENETOCLAX
     Indication: Chronic myeloid leukaemia
     Route: 048
  4. PANTOPRAZOLE [Concomitant]
     Active Substance: PANTOPRAZOLE
     Indication: Antacid therapy
  5. METOPROLOL [Concomitant]
     Active Substance: METOPROLOL
     Indication: Cardiac discomfort
     Dosage: FORM STRENGTH: 25 MILLIGRAM
  6. LEVOTHYROXINE [Concomitant]
     Active Substance: LEVOTHYROXINE\LEVOTHYROXINE SODIUM
     Indication: Thyroid disorder
  7. VALACYCLOVIR [Concomitant]
     Active Substance: VALACYCLOVIR HYDROCHLORIDE
     Indication: Pain prophylaxis
     Dosage: FREQUENCY TEXT: AS NEEDED
  8. GAZYVA [Concomitant]
     Active Substance: OBINUTUZUMAB
     Indication: Product used for unknown indication
  9. POTASSIUM [Concomitant]
     Active Substance: POTASSIUM
     Indication: Product used for unknown indication
  10. URSODIOL [Concomitant]
     Active Substance: URSODIOL
     Indication: Cholelithiasis
  11. IRON [Concomitant]
     Active Substance: IRON
     Indication: Mineral supplementation
     Dosage: FREQUENCY TEXT: AS NEEDED
  12. ALLOPURINOL [Concomitant]
     Active Substance: ALLOPURINOL
     Indication: Gout

REACTIONS (14)
  - Intestinal haemorrhage [Recovered/Resolved]
  - Cholecystitis [Not Recovered/Not Resolved]
  - Diarrhoea [Not Recovered/Not Resolved]
  - Sepsis [Recovered/Resolved]
  - Infection parasitic [Recovered/Resolved]
  - Faeces discoloured [Recovered/Resolved]
  - Renal disorder [Recovering/Resolving]
  - Cholelithiasis [Not Recovered/Not Resolved]
  - Malaise [Unknown]
  - Lymphadenopathy [Unknown]
  - Biliary obstruction [Unknown]
  - Hepatic infection [Unknown]
  - Cholecystitis infective [Unknown]
  - Dermatitis contact [Unknown]

NARRATIVE: CASE EVENT DATE: 20230101
